FAERS Safety Report 21761924 (Version 1)
Quarter: 2022Q4

REPORT INFORMATION
  Report Type: Report from Study
  Country: CO (occurrence: CO)
  Receive Date: 20221221
  Receipt Date: 20221221
  Transmission Date: 20230113
  Serious: Yes (Other)
  Sender: FDA-Public Use
  Company Number: CO-BAYER-2022A171284

PATIENT
  Age: 65 Year
  Sex: Female

DRUGS (1)
  1. NEXAVAR [Suspect]
     Active Substance: SORAFENIB
     Indication: Hepatocellular carcinoma
     Dosage: 600 MG DAILY
     Dates: start: 20200803

REACTIONS (4)
  - Palmoplantar keratoderma [Not Recovered/Not Resolved]
  - Pain [Not Recovered/Not Resolved]
  - Gait disturbance [Not Recovered/Not Resolved]
  - Off label use [None]

NARRATIVE: CASE EVENT DATE: 20200803
